FAERS Safety Report 7098549-9 (Version None)
Quarter: 2010Q4

REPORT INFORMATION
  Report Type: 
  Country: None (occurrence: None)
  Receive Date: 20101112
  Receipt Date: 20101029
  Transmission Date: 20110411
  Serious: Yes (Other)
  Sender: FDA-Public Use
  Company Number: PHHY2010ZA73098

PATIENT
  Age: 69 Year
  Sex: Female

DRUGS (1)
  1. ACLASTA [Suspect]
     Dosage: 5MG/100ML
     Route: 042
     Dates: start: 20101028

REACTIONS (4)
  - DISCOMFORT [None]
  - MONOPLEGIA [None]
  - MUSCULOSKELETAL CHEST PAIN [None]
  - NECK PAIN [None]
